FAERS Safety Report 8489095 (Version 2)
Quarter: 2013Q4

REPORT INFORMATION
  Report Type: Spontaneous
  Country: US (occurrence: US)
  Receive Date: 20120402
  Receipt Date: 20131106
  Transmission Date: 20140711
  Serious: No
  Sender: FDA-Public Use
  Company Number: US-AMGEN-USASP2012013772

PATIENT
  Age: 22 Year
  Sex: Male

DRUGS (1)
  1. ENBREL [Suspect]
     Indication: VASCULITIS
     Dosage: 50 MG, QWK
     Route: 065
     Dates: start: 20021219

REACTIONS (2)
  - Arthralgia [Not Recovered/Not Resolved]
  - Vasculitis [Not Recovered/Not Resolved]
